FAERS Safety Report 12987212 (Version 1)
Quarter: 2016Q4

REPORT INFORMATION
  Report Type: Spontaneous
  Country: US (occurrence: US)
  Receive Date: 20161130
  Receipt Date: 20161130
  Transmission Date: 20170207
  Serious: No
  Sender: FDA-Public Use
  Company Number: US-TARO-2016TAR00179

PATIENT
  Age: 66 Year
  Sex: Female

DRUGS (2)
  1. CARBAMAZEPINE TABLETS 100 MG [Suspect]
     Active Substance: CARBAMAZEPINE
     Indication: TRIGEMINAL NEURALGIA
     Dosage: 0.5 TABLETS, 1X/DAY
     Route: 048
     Dates: start: 20130115, end: 20130125
  2. HORIZANT [Concomitant]
     Active Substance: GABAPENTIN ENACARBIL
     Dosage: 600 MG, 1X/DAY
     Route: 048
     Dates: start: 201207

REACTIONS (6)
  - Lethargy [Unknown]
  - Headache [Recovering/Resolving]
  - Depressed mood [Unknown]
  - Feeling abnormal [Recovered/Resolved]
  - Drug ineffective [Not Recovered/Not Resolved]
  - Asthenia [Unknown]

NARRATIVE: CASE EVENT DATE: 201301
